FAERS Safety Report 5880880-3 (Version None)
Quarter: 2008Q3

REPORT INFORMATION
  Report Type: 
  Country: None (occurrence: None)
  Receive Date: 20080912
  Receipt Date: 20080731
  Transmission Date: 20090109
  Serious: No
  Sender: FDA-Public Use
  Company Number: US-ABBOTT-08P-163-0456851-00

PATIENT
  Sex: Female
  Weight: 74.91 kg

DRUGS (14)
  1. HUMIRA [Suspect]
     Indication: RHEUMATOID ARTHRITIS
     Route: 058
     Dates: start: 20070101, end: 20070101
  2. HUMIRA [Suspect]
     Route: 058
     Dates: start: 20080501, end: 20080601
  3. HUMIRA [Suspect]
     Dates: start: 20080601
  4. VICODIN [Suspect]
     Indication: PAIN
     Dosage: 800MG 4-5 TIMES A DAY
     Route: 048
  5. LEFLUNOMIDE [Concomitant]
     Indication: RHEUMATOID ARTHRITIS
     Route: 048
  6. PREDNISONE TAB [Concomitant]
     Indication: RHEUMATOID ARTHRITIS
     Route: 048
     Dates: end: 20080501
  7. PREDNISONE TAB [Concomitant]
     Route: 048
     Dates: start: 20080501
  8. PREDNISONE TAB [Concomitant]
     Dosage: FOR TWO WEEKS
     Route: 048
  9. PREDNISONE TAB [Concomitant]
     Dosage: FOR TWO WEEKS
     Route: 048
  10. PREDNISONE TAB [Concomitant]
     Route: 048
  11. TYLOX [Concomitant]
     Indication: PAIN
     Dosage: 800MG 4-5 TABLETS PER DAY
     Route: 048
  12. LEVOTHYROXINE SODIUM [Concomitant]
     Indication: HYPOTHYROIDISM
     Route: 048
  13. ATENOLOL [Concomitant]
     Indication: BLOOD PRESSURE
     Route: 048
     Dates: start: 20030101
  14. ESOMEPRAZOLE MAGNESIUM [Concomitant]
     Indication: DYSPEPSIA
     Route: 048

REACTIONS (6)
  - ASTHENIA [None]
  - CONTUSION [None]
  - FALL [None]
  - HEADACHE [None]
  - MUSCULOSKELETAL CHEST PAIN [None]
  - PRURITUS GENERALISED [None]
